FAERS Safety Report 19649611 (Version 3)
Quarter: 2021Q4

REPORT INFORMATION
  Report Type: Spontaneous
  Country: US (occurrence: US)
  Receive Date: 20210802
  Receipt Date: 20211013
  Transmission Date: 20220303
  Serious: No
  Sender: FDA-Public Use
  Company Number: US-PFIZER INC-2021620764

PATIENT
  Age: 84 Year
  Sex: Female
  Weight: 58.05 kg

DRUGS (3)
  1. IBRANCE [Suspect]
     Active Substance: PALBOCICLIB
     Indication: Breast cancer female
     Dosage: UNK
  2. IBRANCE [Suspect]
     Active Substance: PALBOCICLIB
     Dosage: 75 MG, CYCLIC, 12 DAYS THE 7 DAYS OFF
     Route: 048
  3. IBRANCE [Suspect]
     Active Substance: PALBOCICLIB
     Dosage: 75 MG

REACTIONS (7)
  - Off label use [Unknown]
  - Alopecia [Unknown]
  - Neutrophil count decreased [Unknown]
  - Hypotension [Unknown]
  - Weight decreased [Unknown]
  - Pain in extremity [Unknown]
  - Fatigue [Unknown]
